FAERS Safety Report 20101204 (Version 3)
Quarter: 2022Q4

REPORT INFORMATION
  Report Type: Report from Study
  Country: US (occurrence: US)
  Receive Date: 20211123
  Receipt Date: 20221220
  Transmission Date: 20230113
  Serious: Yes (Hospitalization, Other)
  Sender: FDA-Public Use
  Company Number: US-TAKEDA-2021TUS074134

PATIENT
  Sex: Male

DRUGS (8)
  1. TEDUGLUTIDE [Suspect]
     Active Substance: TEDUGLUTIDE
     Indication: Product used for unknown indication
     Dosage: UNK
     Route: 050
     Dates: start: 20210511
  2. TEDUGLUTIDE [Suspect]
     Active Substance: TEDUGLUTIDE
     Indication: Product used for unknown indication
     Dosage: UNK
     Route: 050
     Dates: start: 20210511
  3. TEDUGLUTIDE [Suspect]
     Active Substance: TEDUGLUTIDE
     Indication: Product used for unknown indication
     Dosage: UNK
     Route: 050
     Dates: start: 20210511
  4. TEDUGLUTIDE [Suspect]
     Active Substance: TEDUGLUTIDE
     Indication: Product used for unknown indication
     Dosage: UNK
     Route: 050
     Dates: start: 20210511
  5. TEDUGLUTIDE [Suspect]
     Active Substance: TEDUGLUTIDE
     Dosage: UNK
     Route: 050
     Dates: start: 20220520
  6. TEDUGLUTIDE [Suspect]
     Active Substance: TEDUGLUTIDE
     Dosage: UNK
     Route: 050
     Dates: start: 20220520
  7. TEDUGLUTIDE [Suspect]
     Active Substance: TEDUGLUTIDE
     Dosage: UNK
     Route: 050
     Dates: start: 20220520
  8. TEDUGLUTIDE [Suspect]
     Active Substance: TEDUGLUTIDE
     Dosage: UNK
     Route: 050
     Dates: start: 20220520

REACTIONS (5)
  - Respiratory syncytial virus infection [Unknown]
  - Diarrhoea [Unknown]
  - Weight increased [Unknown]
  - Faeces hard [Unknown]
  - Nasopharyngitis [Unknown]
